FAERS Safety Report 6682414-2 (Version None)
Quarter: 2010Q2

REPORT INFORMATION
  Report Type: 
  Country: None (occurrence: None)
  Receive Date: 20100414
  Receipt Date: 20100414
  Transmission Date: 20101027
  Serious: No
  Sender: FDA-Public Use
  Company Number: None

PATIENT
  Age: 45 Year
  Sex: Male
  Weight: 67.5 kg

DRUGS (1)
  1. TENOFOVIR [Suspect]
     Indication: ACQUIRED IMMUNODEFICIENCY SYNDROME
     Dosage: 300 MG EVERY DAY PO
     Route: 048
     Dates: start: 20080429, end: 20091229

REACTIONS (2)
  - AZOTAEMIA [None]
  - DRUG TOXICITY [None]
